FAERS Safety Report 11965843 (Version 1)
Quarter: 2016Q1

REPORT INFORMATION
  Report Type: Spontaneous
  Country: US (occurrence: None)
  Receive Date: 20160125
  Receipt Date: 20160125
  Transmission Date: 20160526
  Serious: Yes (Disabling)
  Sender: FDA-Public Use
  Company Number: None

PATIENT
  Age: 45 Year
  Sex: Male
  Weight: 117.94 kg

DRUGS (2)
  1. METFORMIN [Concomitant]
     Active Substance: METFORMIN HYDROCHLORIDE
  2. CHANTIX [Suspect]
     Active Substance: VARENICLINE TARTRATE
     Indication: SMOKING CESSATION THERAPY
     Dosage: 1 PILL TWICE DAILY TAKEN BY MOUTH
     Route: 048
     Dates: start: 20151129, end: 20160116

REACTIONS (10)
  - Physical assault [None]
  - Alcohol use [None]
  - Fatigue [None]
  - Feeling abnormal [None]
  - Psychotic disorder [None]
  - Product label issue [None]
  - Aggression [None]
  - Screaming [None]
  - Confusional state [None]
  - Alcohol interaction [None]

NARRATIVE: CASE EVENT DATE: 20160116
